FAERS Safety Report 13674018 (Version 2)
Quarter: 2017Q3

REPORT INFORMATION
  Report Type: Spontaneous
  Country: US (occurrence: US)
  Receive Date: 20170621
  Receipt Date: 20170807
  Transmission Date: 20171127
  Serious: Yes (Other)
  Sender: FDA-Public Use
  Company Number: US-AUROBINDO-AUR-APU-2017-35451

PATIENT

DRUGS (1)
  1. CIPROFLOXACIN TABLETS USP 500 MG [Suspect]
     Active Substance: CIPROFLOXACIN
     Indication: INFECTION
     Dosage: 4 PILLS A DAY
     Route: 065
     Dates: start: 20170605, end: 20170606

REACTIONS (3)
  - Urinary retention [Unknown]
  - Faeces pale [Unknown]
  - Chromaturia [Unknown]

NARRATIVE: CASE EVENT DATE: 20170606
